FAERS Safety Report 7306158-9 (Version None)
Quarter: 2011Q1

REPORT INFORMATION
  Report Type: 
  Country: None (occurrence: None)
  Receive Date: 20110210
  Receipt Date: 20110127
  Transmission Date: 20110831
  Serious: Yes (Hospitalization)
  Sender: FDA-Public Use
  Company Number: IDA-00487

PATIENT
  Age: 45 Year
  Sex: Female

DRUGS (4)
  1. MEDIATOR (BENFLUOREX HYDROCHLORIDE) [Suspect]
     Dosage: 3 DF DAILY, ORAL FORMULATION
     Route: 048
     Dates: start: 20080101, end: 20080601
  2. AMITRIPTYLINE HCL [Suspect]
     Dosage: 18 GTT DAILY; ORAL FORMULATION: DROPS
     Route: 048
  3. LEVOTHYROX (LEVOTHYROXINE SODIUM) [Suspect]
     Dosage: ORAL FORMULATION
     Route: 048
  4. AVLOCARDYL (PROPRANOLOL) [Suspect]
     Dosage: 40 MG BID, ORAL FORMULATION TABLET
     Route: 048

REACTIONS (10)
  - TRACHEITIS [None]
  - LEFT VENTRICULAR FAILURE [None]
  - LEFT VENTRICULAR DYSFUNCTION [None]
  - MITRAL VALVE INCOMPETENCE [None]
  - AORTIC VALVE INCOMPETENCE [None]
  - AKINESIA [None]
  - CARDIAC FAILURE [None]
  - DEEP VEIN THROMBOSIS [None]
  - PULMONARY EMBOLISM [None]
  - DYSPNOEA [None]
